FAERS Safety Report 9689492 (Version 1)
Quarter: 2013Q4

REPORT INFORMATION
  Report Type: Spontaneous
  Country: DE (occurrence: DE)
  Receive Date: 20131114
  Receipt Date: 20131114
  Transmission Date: 20140711
  Serious: Yes (Life-Threatening, Hospitalization)
  Sender: FDA-Public Use
  Company Number: DE-MYLANLABS-2013S1024697

PATIENT
  Age: 44 Year
  Sex: Male
  Weight: 96 kg

DRUGS (1)
  1. AZATHIOPRINE [Suspect]
     Indication: AUTOIMMUNE HEPATITIS
     Route: 048
     Dates: start: 20130610, end: 20130705

REACTIONS (1)
  - Aplastic anaemia [Not Recovered/Not Resolved]
